FAERS Safety Report 13721718 (Version 3)
Quarter: 2017Q4

REPORT INFORMATION
  Report Type: Spontaneous
  Country: US (occurrence: US)
  Receive Date: 20170706
  Receipt Date: 20171120
  Transmission Date: 20180320
  Serious: No
  Sender: FDA-Public Use
  Company Number: US-PFIZER INC-2016395871

PATIENT
  Age: 87 Year
  Sex: Female
  Weight: 72.1 kg

DRUGS (6)
  1. AMLODIPINE [Concomitant]
     Active Substance: AMLODIPINE BESYLATE
     Dosage: 5 MG, DAILY
     Dates: start: 20150922
  2. LIDOCAINE. [Concomitant]
     Active Substance: LIDOCAINE
     Indication: ARTHRALGIA
     Dosage: UNK, ALTERNATE DAY
     Dates: start: 20170925
  3. IBRANCE [Suspect]
     Active Substance: PALBOCICLIB
     Dosage: 100 MG, 1X/DAY
     Route: 048
     Dates: start: 20170612
  4. AMLODIPINE [Concomitant]
     Active Substance: AMLODIPINE BESYLATE
     Dosage: 10 MG, 1X/DAY
     Route: 048
     Dates: start: 20170925
  5. IBRANCE [Suspect]
     Active Substance: PALBOCICLIB
     Indication: BREAST CANCER FEMALE
     Dosage: 100 MG, 1X/DAY
     Route: 048
     Dates: start: 20160816
  6. FASLODEX [Suspect]
     Active Substance: FULVESTRANT
     Indication: BREAST CANCER FEMALE
     Dosage: 500 MG, CYCLIC, (EVERY 28 DAYS X 12 CYCLES)
     Dates: start: 20160908

REACTIONS (10)
  - Anxiety [Unknown]
  - White blood cell count decreased [Unknown]
  - Blood lactate dehydrogenase increased [Unknown]
  - Urinary tract infection [Unknown]
  - Haematocrit decreased [Unknown]
  - Pollakiuria [Unknown]
  - Haemoglobin decreased [Unknown]
  - Mean cell volume increased [Unknown]
  - Blood urea increased [Unknown]
  - Carbohydrate antigen 27.29 increased [Unknown]

NARRATIVE: CASE EVENT DATE: 201705
